FAERS Safety Report 9651850 (Version 1)
Quarter: 2013Q4

REPORT INFORMATION
  Report Type: Spontaneous
  Country: US (occurrence: US)
  Receive Date: 20131029
  Receipt Date: 20131029
  Transmission Date: 20140711
  Serious: No
  Sender: FDA-Public Use
  Company Number: US-ENDO PHARMACEUTICALS INC.-NYST20110003

PATIENT
  Sex: Male
  Weight: 86.26 kg

DRUGS (2)
  1. NYSTATIN SUSPENSION [Suspect]
     Indication: ORAL FUNGAL INFECTION
     Dosage: UNK
     Route: 048
  2. INHALER [Concomitant]
     Indication: PRODUCT USED FOR UNKNOWN INDICATION
     Dosage: UNK

REACTIONS (3)
  - Throat tightness [Unknown]
  - Dyspnoea [Unknown]
  - Gastric pH decreased [Unknown]
